FAERS Safety Report 7387214-6 (Version None)
Quarter: 2011Q1

REPORT INFORMATION
  Report Type: 
  Country: None (occurrence: None)
  Receive Date: 20110331
  Receipt Date: 20110322
  Transmission Date: 20110831
  Serious: Yes (Hospitalization, Other)
  Sender: FDA-Public Use
  Company Number: US-ASTRAZENECA-2010SE47247

PATIENT
  Age: 71 Year
  Sex: Female
  Weight: 93.4 kg

DRUGS (19)
  1. WARFARIN [Concomitant]
     Dosage: VARING AMOUNT CURRENTLY ON 5 MG M-F, 2.5 S-S
  2. LEVOTHYROXINE SODIUM [Concomitant]
  3. SYMBALTA [Concomitant]
  4. NEURONTIN [Concomitant]
  5. DIGOXIN [Concomitant]
  6. METOPROLOL TARTRATE [Concomitant]
  7. AMBIEN [Concomitant]
  8. SPIRONOLACTONE [Concomitant]
  9. RANEXA [Concomitant]
  10. LEVOXYL [Concomitant]
  11. MIDODRINE HYDROCHLORIDE [Concomitant]
  12. CRESTOR [Suspect]
     Route: 048
  13. ISORB [Concomitant]
  14. REGLAN [Concomitant]
  15. ASPIRIN [Concomitant]
  16. SOTALOL [Concomitant]
  17. SEROQUEL XR [Suspect]
     Route: 048
  18. NEURONTIN [Concomitant]
  19. XANAX [Concomitant]

REACTIONS (13)
  - LOSS OF CONSCIOUSNESS [None]
  - UPPER LIMB FRACTURE [None]
  - FALL [None]
  - MIGRAINE [None]
  - ORTHOSTATIC HYPOTENSION [None]
  - KNEE ARTHROPLASTY [None]
  - FOOT FRACTURE [None]
  - SPINAL COLUMN STENOSIS [None]
  - STENT PLACEMENT [None]
  - CHRONIC OBSTRUCTIVE PULMONARY DISEASE [None]
  - WRIST FRACTURE [None]
  - CARDIAC ASSISTANCE DEVICE USER [None]
  - WEIGHT ABNORMAL [None]
